FAERS Safety Report 10028938 (Version 2)
Quarter: 2014Q2

REPORT INFORMATION
  Report Type: Spontaneous
  Country: US (occurrence: US)
  Receive Date: 20140321
  Receipt Date: 20140416
  Transmission Date: 20141212
  Serious: No
  Sender: FDA-Public Use
  Company Number: US-TEVA-464440USA

PATIENT
  Age: 47 Year
  Sex: Female
  Weight: 131.66 kg

DRUGS (10)
  1. NUVIGIL [Suspect]
     Indication: SLEEP APNOEA SYNDROME
     Route: 048
  2. NUVIGIL [Suspect]
     Indication: NARCOLEPSY
  3. OMEPRAZOLE [Concomitant]
     Indication: GASTROOESOPHAGEAL REFLUX DISEASE
     Dosage: 40 MILLIGRAM DAILY;
  4. BISPROLOL FUMERATE [Concomitant]
     Indication: HYPERTENSION
     Dosage: 5 MILLIGRAM DAILY;
  5. BENICAR HCT [Concomitant]
     Indication: HYPERTENSION
     Dosage: 40/25 MG
  6. SYNTHROID [Concomitant]
     Indication: HYPOTHYROIDISM
     Dosage: .075 MILLIGRAM DAILY;
  7. BUPROPION [Concomitant]
     Indication: DEPRESSION
     Dosage: 150 MILLIGRAM DAILY;
  8. VIBRYD [Concomitant]
     Indication: DEPRESSION
     Dosage: 40 MILLIGRAM DAILY;
  9. VICOPROFEN [Concomitant]
     Indication: BACK PAIN
  10. ALPRAZOLAM [Concomitant]
     Indication: ANXIETY

REACTIONS (10)
  - Chromaturia [Recovered/Resolved]
  - Muscle rigidity [Recovered/Resolved]
  - Myalgia [Not Recovered/Not Resolved]
  - Muscle spasms [Recovered/Resolved]
  - Diarrhoea [Not Recovered/Not Resolved]
  - Mania [Unknown]
  - Hypersomnia [Unknown]
  - Weight decreased [Unknown]
  - Hallucination [Unknown]
  - Muscle spasms [Unknown]
